FAERS Safety Report 9879721 (Version 2)
Quarter: 2014Q3

REPORT INFORMATION
  Report Type: Spontaneous
  Country: US (occurrence: US)
  Receive Date: 20140206
  Receipt Date: 20140811
  Transmission Date: 20150326
  Serious: Yes (Hospitalization, Other)
  Sender: FDA-Public Use
  Company Number: US-009507513-1402USA002875

PATIENT
  Sex: Female
  Weight: 116.1 kg

DRUGS (1)
  1. NUVARING [Suspect]
     Active Substance: ETHINYL ESTRADIOL\ETONOGESTREL
     Indication: PRODUCT USED FOR UNKNOWN INDICATION
     Dosage: PLACE IN VAGINA FOR 3 WEEKS, REMOVE FOR 1 WEEK, THEN REPEAT WITH NEW RING
     Route: 067
     Dates: start: 20051005

REACTIONS (8)
  - Arthralgia [Unknown]
  - Anticoagulation drug level below therapeutic [Unknown]
  - Pneumonia [Unknown]
  - Atelectasis [Unknown]
  - Blood urea decreased [Unknown]
  - Cellulitis [Unknown]
  - Pulmonary embolism [Unknown]
  - Constipation [Unknown]

NARRATIVE: CASE EVENT DATE: 20060921
